FAERS Safety Report 9778019 (Version 1)
Quarter: 2013Q4

REPORT INFORMATION
  Report Type: Spontaneous
  Country: US (occurrence: US)
  Receive Date: 20131223
  Receipt Date: 20131223
  Transmission Date: 20140711
  Serious: No
  Sender: FDA-Public Use
  Company Number: US-B.I. PHARMACEUTICALS,INC./RIDGEFIELD-2013-BI-41408BP

PATIENT
  Sex: Female
  Weight: 82 kg

DRUGS (7)
  1. COMBIVENT [Suspect]
     Indication: CHRONIC OBSTRUCTIVE PULMONARY DISEASE
     Dosage: STRENGTH: 18 MCG / 103 MCG; DAILY DOSE: 144 MCG/ 824 MCG
     Route: 055
     Dates: start: 2000, end: 201301
  2. ZYRTEC [Concomitant]
     Indication: SEASONAL ALLERGY
     Dosage: 10 MG
     Route: 048
  3. SOMA [Concomitant]
     Indication: BACK PAIN
     Route: 048
  4. ALPRAZOLAM [Concomitant]
     Indication: ANXIETY
     Dosage: 6 MG
     Route: 048
  5. OXYCONTIN [Concomitant]
     Indication: BACK PAIN
     Dosage: 40 MG
     Route: 048
  6. OXYCODONE [Concomitant]
     Indication: BREAKTHROUGH PAIN
     Dosage: 40 MG
     Route: 048
  7. DUO NEBULIZER [Concomitant]
     Indication: CHRONIC OBSTRUCTIVE PULMONARY DISEASE
     Route: 055

REACTIONS (2)
  - Dyspnoea [Not Recovered/Not Resolved]
  - Asthma [Unknown]
